FAERS Safety Report 11842652 (Version 6)
Quarter: 2016Q2

REPORT INFORMATION
  Report Type: Report from Study
  Country: FI (occurrence: FI)
  Receive Date: 20151216
  Receipt Date: 20160415
  Transmission Date: 20160815
  Serious: Yes (Other)
  Sender: FDA-Public Use
  Company Number: PHHY2015FI162897

PATIENT
  Sex: Female

DRUGS (3)
  1. GILENYA [Suspect]
     Active Substance: FINGOLIMOD HYDROCHLORIDE
     Indication: MULTIPLE SCLEROSIS
     Dosage: 0.5 MG, QD
     Route: 065
     Dates: start: 201302
  2. AMLODIPIN ORION//AMLODIPINE BESILATE [Concomitant]
     Indication: HYPERTENSION
     Dosage: 5 MG, QD
     Route: 065
  3. DIOVAN COMP [Concomitant]
     Active Substance: HYDROCHLOROTHIAZIDE\VALSARTAN
     Indication: HYPERTENSION
     Dosage: 1 DF (80MG/12.5MG), QD
     Route: 065

REACTIONS (12)
  - Myalgia [Recovered/Resolved]
  - Secretion discharge [Unknown]
  - Eye pruritus [Recovered/Resolved]
  - Sensation of foreign body [Recovered/Resolved]
  - Axillary pain [Not Recovered/Not Resolved]
  - Stress [Unknown]
  - Allergy to animal [Recovered/Resolved]
  - JC virus test positive [Not Recovered/Not Resolved]
  - Vomiting [Unknown]
  - Pruritus [Recovering/Resolving]
  - Musculoskeletal stiffness [Recovered/Resolved]
  - Fatigue [Unknown]

NARRATIVE: CASE EVENT DATE: 2015
